FAERS Safety Report 7183198-4 (Version None)
Quarter: 2010Q4

REPORT INFORMATION
  Report Type: 
  Country: None (occurrence: None)
  Receive Date: 20101222
  Receipt Date: 20090815
  Transmission Date: 20110411
  Serious: No
  Sender: FDA-Public Use
  Company Number: A0803117A

PATIENT
  Sex: Female

DRUGS (1)
  1. FLUTICASONE PROPIONATE [Suspect]
     Indication: MULTIPLE ALLERGIES
     Route: 045

REACTIONS (1)
  - THERAPEUTIC RESPONSE DECREASED [None]
